FAERS Safety Report 14279331 (Version 1)
Quarter: 2017Q4

REPORT INFORMATION
  Report Type: Spontaneous
  Country: MY (occurrence: MY)
  Receive Date: 20171212
  Receipt Date: 20171212
  Transmission Date: 20180321
  Serious: Yes (Death)
  Sender: FDA-Public Use
  Company Number: PHHY2017MY184060

PATIENT
  Age: 26 Year
  Sex: Female

DRUGS (2)
  1. IMATINIB [Suspect]
     Active Substance: IMATINIB
     Indication: HODGKIN^S DISEASE STAGE IV
     Route: 065
  2. IMATINIB [Suspect]
     Active Substance: IMATINIB
     Indication: LUNG INFILTRATION

REACTIONS (2)
  - Respiratory failure [Fatal]
  - Drug ineffective for unapproved indication [Unknown]
